FAERS Safety Report 17037815 (Version 1)
Quarter: 2019Q4

REPORT INFORMATION
  Report Type: Report from Study
  Country: DE (occurrence: DE)
  Receive Date: 20191115
  Receipt Date: 20191115
  Transmission Date: 20200122
  Serious: Yes (Other)
  Sender: FDA-Public Use
  Company Number: DE-BAXTER-2019BAX023178

PATIENT
  Age: 23 Year
  Sex: Male

DRUGS (31)
  1. DOXIL [Suspect]
     Active Substance: DOXORUBICIN HYDROCHLORIDE
     Route: 041
     Dates: start: 20180906, end: 20180906
  2. DOXIL [Suspect]
     Active Substance: DOXORUBICIN HYDROCHLORIDE
     Route: 041
     Dates: start: 20181004, end: 20181004
  3. RITUXIMAB. [Suspect]
     Active Substance: RITUXIMAB
     Route: 041
     Dates: start: 20180823, end: 20180823
  4. VINCRISTINE [Suspect]
     Active Substance: VINCRISTINE
     Route: 041
     Dates: start: 20181004, end: 20181004
  5. PREDNISONE. [Suspect]
     Active Substance: PREDNISONE
     Indication: DIFFUSE LARGE B-CELL LYMPHOMA
     Route: 048
     Dates: start: 20180809, end: 20180813
  6. PREDNISONE. [Suspect]
     Active Substance: PREDNISONE
     Route: 048
     Dates: start: 20180906, end: 20180910
  7. DOXIL [Suspect]
     Active Substance: DOXORUBICIN HYDROCHLORIDE
     Route: 041
     Dates: start: 20180920, end: 20180920
  8. CYCLOPHOSPHAMIDE. [Suspect]
     Active Substance: CYCLOPHOSPHAMIDE
     Route: 041
     Dates: start: 20180823, end: 20180823
  9. ACYCLOVIR. [Concomitant]
     Active Substance: ACYCLOVIR
     Indication: PROPHYLAXIS
     Route: 048
     Dates: start: 20180809
  10. DOXIL [Suspect]
     Active Substance: DOXORUBICIN HYDROCHLORIDE
     Route: 041
     Dates: start: 20180823, end: 20180823
  11. PREDNISONE. [Suspect]
     Active Substance: PREDNISONE
     Route: 048
     Dates: start: 20181004
  12. CYCLOPHOSPHAMIDE. [Suspect]
     Active Substance: CYCLOPHOSPHAMIDE
     Route: 041
     Dates: start: 20181004, end: 20181004
  13. VINCRISTINE [Suspect]
     Active Substance: VINCRISTINE
     Indication: DIFFUSE LARGE B-CELL LYMPHOMA
     Route: 041
     Dates: start: 20180809, end: 20180809
  14. DOXIL [Suspect]
     Active Substance: DOXORUBICIN HYDROCHLORIDE
     Indication: DIFFUSE LARGE B-CELL LYMPHOMA
     Route: 041
     Dates: start: 20180809, end: 20180809
  15. PREDNISONE. [Suspect]
     Active Substance: PREDNISONE
     Route: 048
     Dates: start: 20180823, end: 20180827
  16. VINCRISTINE [Suspect]
     Active Substance: VINCRISTINE
     Route: 041
     Dates: start: 20180906, end: 20180906
  17. FILGRASTIM [Concomitant]
     Active Substance: FILGRASTIM
     Indication: PROPHYLAXIS
     Route: 058
     Dates: start: 20190809
  18. CYCLOPHOSPHAMIDE. [Suspect]
     Active Substance: CYCLOPHOSPHAMIDE
     Indication: DIFFUSE LARGE B-CELL LYMPHOMA
     Route: 041
     Dates: start: 20180809, end: 20180809
  19. CYCLOPHOSPHAMIDE. [Suspect]
     Active Substance: CYCLOPHOSPHAMIDE
     Route: 041
     Dates: start: 20180906, end: 20180906
  20. PARACETAMOL [Concomitant]
     Active Substance: ACETAMINOPHEN
     Indication: PROPHYLAXIS
     Route: 048
     Dates: start: 20180809
  21. CLEMASTINE FUMARATE. [Concomitant]
     Active Substance: CLEMASTINE FUMARATE
     Indication: PROPHYLAXIS
     Route: 042
     Dates: start: 20180809
  22. ONDANSETRON [Concomitant]
     Active Substance: ONDANSETRON
     Indication: PROPHYLAXIS
     Route: 042
     Dates: start: 20180809
  23. RITUXIMAB. [Suspect]
     Active Substance: RITUXIMAB
     Route: 041
     Dates: start: 20180920, end: 20180920
  24. PREDNISONE. [Suspect]
     Active Substance: PREDNISONE
     Route: 048
     Dates: start: 20180920, end: 20180924
  25. CYCLOPHOSPHAMIDE. [Suspect]
     Active Substance: CYCLOPHOSPHAMIDE
     Route: 041
     Dates: start: 20180920, end: 20180920
  26. RITUXIMAB. [Suspect]
     Active Substance: RITUXIMAB
     Indication: DIFFUSE LARGE B-CELL LYMPHOMA
     Route: 041
     Dates: start: 20190809, end: 20190809
  27. RITUXIMAB. [Suspect]
     Active Substance: RITUXIMAB
     Route: 041
     Dates: start: 20180906, end: 20180906
  28. RITUXIMAB. [Suspect]
     Active Substance: RITUXIMAB
     Route: 041
     Dates: start: 20181004
  29. VINCRISTINE [Suspect]
     Active Substance: VINCRISTINE
     Route: 041
     Dates: start: 20180823, end: 20180823
  30. VINCRISTINE [Suspect]
     Active Substance: VINCRISTINE
     Route: 041
     Dates: start: 20180920, end: 20180920
  31. UROMITEXAN [Concomitant]
     Active Substance: MESNA
     Indication: PROPHYLAXIS
     Route: 042

REACTIONS (2)
  - Neutropenia [Recovered/Resolved]
  - Alopecia [Recovered/Resolved]

NARRATIVE: CASE EVENT DATE: 20180816
